FAERS Safety Report 13775368 (Version 1)
Quarter: 2017Q3

REPORT INFORMATION
  Report Type: Spontaneous
  Country: DE (occurrence: DE)
  Receive Date: 20170720
  Receipt Date: 20170720
  Transmission Date: 20171127
  Serious: Yes (Other)
  Sender: FDA-Public Use
  Company Number: DE-PFIZER INC-1667395

PATIENT
  Age: 58 Year
  Sex: Female

DRUGS (4)
  1. CALCIUM FOLINATE [Suspect]
     Active Substance: LEUCOVORIN CALCIUM
     Indication: PERITONEAL CARCINOMA METASTATIC
     Dosage: NOT REPORTED, FREQ: CYCLICAL
  2. BEVACIZUMAB. [Concomitant]
     Active Substance: BEVACIZUMAB
     Indication: PERITONEAL CARCINOMA METASTATIC
     Dosage: NOT REPORTED, FREQ: CYCLICAL
  3. 5 FLUOROURACIL /00098801/ [Concomitant]
     Active Substance: FLUOROURACIL
     Indication: PERITONEAL CARCINOMA METASTATIC
     Dosage: NOT REPORTED, FREQ: CYCLICAL
  4. OXALIPLATIN. [Concomitant]
     Active Substance: OXALIPLATIN
     Indication: PERITONEAL CARCINOMA METASTATIC
     Dosage: NOT REPORTED, FREQ: CYCLICAL

REACTIONS (2)
  - Breast necrosis [Unknown]
  - Extravasation [Unknown]
